FAERS Safety Report 4305681-9 (Version None)
Quarter: 2004Q1

REPORT INFORMATION
  Report Type: 
  Country: None (occurrence: None)
  Receive Date: 20040223
  Receipt Date: 20031125
  Transmission Date: 20041129
  Serious: No
  Sender: FDA-Public Use
  Company Number: SU-2003-001950

PATIENT
  Age: 52 Year
  Sex: Male
  Weight: 74.8435 kg

DRUGS (3)
  1. BENICAR [Suspect]
     Indication: HYPERTENSION
     Dosage: 20 MG QD PO
     Route: 048
     Dates: start: 20020624
  2. IMIPRAMINE [Concomitant]
  3. ALPRAZOLAM [Concomitant]

REACTIONS (3)
  - DIZZINESS [None]
  - FEELING ABNORMAL [None]
  - HEART RATE INCREASED [None]
